FAERS Safety Report 7418778-1 (Version None)
Quarter: 2011Q2

REPORT INFORMATION
  Report Type: 
  Country: None (occurrence: None)
  Receive Date: 20110415
  Receipt Date: 20110414
  Transmission Date: 20111010
  Serious: Yes (Death)
  Sender: FDA-Public Use
  Company Number: CN-BAYER-2011-032217

PATIENT
  Age: 54 Year
  Sex: Male
  Weight: 51 kg

DRUGS (4)
  1. SORAFENIB (RAF KINASE INHIBITOR) [Suspect]
     Indication: METASTASES TO LUNG
     Dosage: 400 MG, QD
     Dates: start: 20110328, end: 20110401
  2. FLUOROURACIL [Concomitant]
  3. SORAFENIB (RAF KINASE INHIBITOR) [Suspect]
     Indication: NASOPHARYNGEAL CANCER
     Dosage: UNK
     Dates: start: 20110322, end: 20110327
  4. CISPLATIN [Concomitant]

REACTIONS (5)
  - ELECTROLYTE IMBALANCE [None]
  - BONE MARROW FAILURE [None]
  - LUNG INFECTION [None]
  - HYPOPROTEINAEMIA [None]
  - MOUTH ULCERATION [None]
